FAERS Safety Report 22067004 (Version 1)
Quarter: 2023Q1

REPORT INFORMATION
  Report Type: Spontaneous
  Country: US (occurrence: US)
  Receive Date: 20230306
  Receipt Date: 20230306
  Transmission Date: 20230418
  Serious: No
  Sender: FDA-Public Use
  Company Number: US-PLXPHARMA-2022-PLX-00041

PATIENT

DRUGS (1)
  1. VAZALORE [Suspect]
     Active Substance: ASPIRIN
     Indication: Anticoagulant therapy
     Dosage: QD
     Route: 048
     Dates: start: 202204, end: 20220501

REACTIONS (7)
  - Paraesthesia [None]
  - Hypoaesthesia [None]
  - Burning sensation [None]
  - Asthenia [None]
  - Pain [None]
  - Pain in extremity [None]
  - Constipation [None]

NARRATIVE: CASE EVENT DATE: 20220401
